FAERS Safety Report 14863333 (Version 1)
Quarter: 2018Q2

REPORT INFORMATION
  Report Type: Spontaneous
  Country: US (occurrence: US)
  Receive Date: 20180508
  Receipt Date: 20180508
  Transmission Date: 20180711
  Serious: No
  Sender: FDA-Public Use
  Company Number: US-ALKERMES INC.-ALK-2017-002439

PATIENT
  Age: 33 Year
  Sex: Female
  Weight: 72.56 kg

DRUGS (3)
  1. VIVITROL [Suspect]
     Active Substance: NALTREXONE
     Indication: DRUG DEPENDENCE
     Dosage: 380 MG, QMO
     Route: 030
     Dates: start: 20170517, end: 20170630
  2. OTHER THERAPEUTIC PRODUCTS [Concomitant]
     Active Substance: UNSPECIFIED INGREDIENT
     Indication: SLEEP DISORDER
     Dosage: UNK, HS
  3. ALEVE [Concomitant]
     Active Substance: NAPROXEN SODIUM
     Indication: PRODUCT USED FOR UNKNOWN INDICATION
     Dosage: UNK, PRN

REACTIONS (18)
  - Feeling abnormal [Recovered/Resolved]
  - Bedridden [Recovered/Resolved]
  - Drug dependence [Not Recovered/Not Resolved]
  - Mobility decreased [Unknown]
  - Anxiety [Unknown]
  - Weight decreased [Unknown]
  - Diarrhoea [Unknown]
  - Weight increased [Not Recovered/Not Resolved]
  - Euphoric mood [Recovered/Resolved]
  - Pain [Recovered/Resolved]
  - Vomiting [Recovered/Resolved]
  - Hyperhidrosis [Unknown]
  - Loss of personal independence in daily activities [Unknown]
  - Decreased appetite [Recovered/Resolved]
  - Abdominal pain upper [Unknown]
  - Asthenia [Unknown]
  - Peripheral swelling [Unknown]
  - Insomnia [Unknown]

NARRATIVE: CASE EVENT DATE: 2017
